FAERS Safety Report 9800051 (Version 2)
Quarter: 2014Q1

REPORT INFORMATION
  Report Type: Spontaneous
  Country: US (occurrence: US)
  Receive Date: 20140106
  Receipt Date: 20140106
  Transmission Date: 20141002
  Serious: No
  Sender: FDA-Public Use
  Company Number: US-GILEAD-2010-0032137

PATIENT
  Age: 57 Year
  Sex: Female
  Weight: 103.42 kg

DRUGS (23)
  1. LETAIRIS [Suspect]
     Indication: PULMONARY ARTERIAL HYPERTENSION
     Route: 048
     Dates: start: 20100310
  2. REVATIO [Concomitant]
  3. DIOVAN [Concomitant]
  4. DIGOXIN [Concomitant]
  5. LASIX [Concomitant]
  6. METOLAZONE [Concomitant]
  7. SINGULAIR [Concomitant]
  8. COMBIVENT [Concomitant]
  9. IPRATROPIUM BROMIDE [Concomitant]
  10. SYMBICORT [Concomitant]
  11. LANTUS [Concomitant]
  12. GABAPENTIN [Concomitant]
  13. PLAQUENIL [Concomitant]
  14. AZATHIOPRINE [Concomitant]
  15. ALENDRONATE [Concomitant]
  16. XANAX [Concomitant]
  17. PREDNISONE [Concomitant]
  18. ALPHAGAN P [Concomitant]
  19. LUMIGAN [Concomitant]
  20. AZOPT [Concomitant]
  21. ESTRADIOL [Concomitant]
  22. POTASSIUM CHLORIDE [Concomitant]
  23. MAG-OX [Concomitant]

REACTIONS (1)
  - Contusion [Unknown]
